FAERS Safety Report 7763878-X (Version None)
Quarter: 2011Q3

REPORT INFORMATION
  Report Type: 
  Country: None (occurrence: None)
  Receive Date: 20110919
  Receipt Date: 20110907
  Transmission Date: 20111222
  Serious: Yes (Hospitalization)
  Sender: FDA-Public Use
  Company Number: 2009-02879

PATIENT
  Age: 74 Year
  Sex: Male
  Weight: 72.0312 kg

DRUGS (8)
  1. LANOXIN [Concomitant]
  2. VELCADE [Suspect]
     Indication: MULTIPLE MYELOMA
     Dosage: 2.8 MG,   , INTRAVENOUS
     Route: 042
     Dates: start: 20090624, end: 20090708
  3. METOPROLOL TARTRATE [Concomitant]
  4. ALFUZOSIN (ALFUZOSIN) [Concomitant]
  5. LENALIDOMIDE [Suspect]
     Indication: MULTIPLE MYELOMA
     Dosage: 15 MG,   , ORAL
     Route: 048
     Dates: start: 20090624, end: 20090713
  6. DEXAMETHASONE TAB [Suspect]
     Indication: MULTIPLE MYELOMA
     Dosage: 20 MG,  , ORAL
     Route: 048
     Dates: start: 20090624, end: 20090709
  7. MAGNESIUM OXIDE (MAGNESIUM OXIDE) [Concomitant]
  8. ATROVENT [Concomitant]

REACTIONS (4)
  - HYPERVENTILATION [None]
  - DIZZINESS [None]
  - RENAL DISORDER [None]
  - HYPOTENSION [None]
